FAERS Safety Report 6414083-0 (Version None)
Quarter: 2009Q4

REPORT INFORMATION
  Report Type: 
  Country: None (occurrence: None)
  Receive Date: 20091026
  Receipt Date: 20091015
  Transmission Date: 20100525
  Serious: Yes (Hospitalization)
  Sender: FDA-Public Use
  Company Number: NL-JNJFOC-20090907551

PATIENT
  Age: 39 Year
  Sex: Male
  Weight: 75 kg

DRUGS (1)
  1. REMICADE [Suspect]
     Indication: COLITIS ULCERATIVE
     Dosage: 0,2,6 WEEKS AND EVERY 2 MONTHS
     Route: 042

REACTIONS (2)
  - ABDOMINAL PAIN [None]
  - GASTROINTESTINAL MOTILITY DISORDER [None]
